FAERS Safety Report 10094206 (Version 1)
Quarter: 2014Q2

REPORT INFORMATION
  Report Type: Spontaneous
  Country: US (occurrence: None)
  Receive Date: 20140418
  Receipt Date: 20140418
  Transmission Date: 20141212
  Serious: Yes (Other)
  Sender: FDA-Public Use
  Company Number: 001708388A

PATIENT
  Age: 48 Year
  Sex: Female

DRUGS (6)
  1. PROACTIV + SKIN SMOOTHING EXFOLIATOR [Suspect]
     Indication: ACNE
     Dosage: TWICE DAILY DERMAL
     Dates: start: 20140318, end: 20140322
  2. PROACTIV + PORE TARGETING TREATMENT [Suspect]
     Indication: ACNE
     Dosage: TWICE DAILY DERMAL
     Dates: start: 20140318, end: 20140322
  3. PROACTIV + SKIN PURIFYING MASK [Suspect]
     Indication: ACNE
     Dosage: TWICE DAILY DERMAL
     Dates: start: 20140318, end: 20140322
  4. PROACTIV +COMPLEXION PERFECTING HYDRATOR [Suspect]
     Indication: ACNE
     Dosage: TWICE DAILY DERMAL
  5. PROACTIV+ MARK FADING PADS [Suspect]
     Indication: ACNE
     Dosage: TWICE DAILY DERMAL
     Dates: start: 20140318, end: 20140322
  6. DAILY MULTIVITAMIN [Concomitant]

REACTIONS (2)
  - Eye swelling [None]
  - Swelling face [None]
